FAERS Safety Report 6615722-1 (Version None)
Quarter: 2010Q1

REPORT INFORMATION
  Report Type: 
  Country: None (occurrence: None)
  Receive Date: 20100305
  Receipt Date: 20100219
  Transmission Date: 20100710
  Serious: Yes (Hospitalization)
  Sender: FDA-Public Use
  Company Number: BR-BIOGENIDEC-2010BI005694

PATIENT
  Age: 58 Year
  Sex: Female

DRUGS (2)
  1. AVONEX [Suspect]
     Indication: MULTIPLE SCLEROSIS
     Route: 030
     Dates: end: 20000101
  2. AVONEX [Suspect]
     Dates: start: 20020101

REACTIONS (8)
  - BLINDNESS [None]
  - CATARACT [None]
  - CHILLS [None]
  - DEPRESSION [None]
  - DIABETES MELLITUS [None]
  - HYPERTENSION [None]
  - TREMOR [None]
  - VISUAL ACUITY REDUCED [None]
